FAERS Safety Report 23410972 (Version 1)
Quarter: 2024Q1

REPORT INFORMATION
  Report Type: Spontaneous
  Country: US (occurrence: US)
  Receive Date: 20240117
  Receipt Date: 20240117
  Transmission Date: 20240410
  Serious: Yes (Other)
  Sender: FDA-Public Use
  Company Number: US-AMGEN-USASP2024008094

PATIENT

DRUGS (1)
  1. BEVACIZUMAB [Suspect]
     Active Substance: BEVACIZUMAB
     Indication: Metastases to central nervous system
     Dosage: UNK
     Route: 065

REACTIONS (6)
  - Metastases to central nervous system [Unknown]
  - Nervous system disorder [Unknown]
  - Ataxia [Unknown]
  - Aphasia [Unknown]
  - Asthenia [Unknown]
  - Off label use [Unknown]
